FAERS Safety Report 18067329 (Version 1)
Quarter: 2020Q3

REPORT INFORMATION
  Report Type: Spontaneous
  Country: US (occurrence: US)
  Receive Date: 20200724
  Receipt Date: 20200724
  Transmission Date: 20201103
  Serious: No
  Sender: FDA-Public Use
  Company Number: US-BAYER-2020-149496

PATIENT
  Sex: Female

DRUGS (22)
  1. FLONASE [Concomitant]
     Active Substance: FLUTICASONE PROPIONATE
  2. FLOMAX [MORNIFLUMATE] [Concomitant]
     Active Substance: MORNIFLUMATE
  3. VALIUM [Concomitant]
     Active Substance: DIAZEPAM
  4. KETOCONAZOLE. [Concomitant]
     Active Substance: KETOCONAZOLE
  5. BETASERON [Suspect]
     Active Substance: INTERFERON BETA-1B
     Indication: PRODUCT USED FOR UNKNOWN INDICATION
     Dosage: UNK
  6. TAMSULOSIN [Concomitant]
     Active Substance: TAMSULOSIN
  7. IPRATROPIUM BROMIDE. [Concomitant]
     Active Substance: IPRATROPIUM BROMIDE
  8. FERROUS SULFATE. [Concomitant]
     Active Substance: FERROUS SULFATE
  9. CRISTAL [Concomitant]
  10. AMANTADINE. [Concomitant]
     Active Substance: AMANTADINE HYDROCHLORIDE
  11. OSCAL [CALCIUM CARBONATE] [Concomitant]
  12. AMBIEN [Concomitant]
     Active Substance: ZOLPIDEM TARTRATE
  13. OPTIVIN [Concomitant]
  14. VALPROIC ACID. [Concomitant]
     Active Substance: VALPROIC ACID
  15. DIVIGEL [Concomitant]
     Active Substance: ESTRADIOL
  16. ALLEGRA [Concomitant]
     Active Substance: FEXOFENADINE HYDROCHLORIDE
  17. OMEPRAZOLE. [Concomitant]
     Active Substance: OMEPRAZOLE
  18. HYDROCORTISONE. [Concomitant]
     Active Substance: HYDROCORTISONE
  19. BACLOFEN. [Concomitant]
     Active Substance: BACLOFEN
  20. TRICILON [TRIAMCINOLONE ACETONIDE] [Concomitant]
  21. COZAAR [Concomitant]
     Active Substance: LOSARTAN POTASSIUM
  22. MINERALS NOS;VITAMINS NOS [Concomitant]
     Active Substance: MINERALS\VITAMINS

REACTIONS (3)
  - Skin mass [Unknown]
  - Skin disorder [Unknown]
  - Drug intolerance [Unknown]
